FAERS Safety Report 7734563-5 (Version None)
Quarter: 2011Q3

REPORT INFORMATION
  Report Type: 
  Country: None (occurrence: None)
  Receive Date: 20110907
  Receipt Date: 20110831
  Transmission Date: 20111222
  Serious: Yes (Other)
  Sender: FDA-Public Use
  Company Number: JP-GLAXOSMITHKLINE-B0745020A

PATIENT
  Sex: Male
  Weight: 73 kg

DRUGS (13)
  1. ALKERAN [Suspect]
     Indication: STEM CELL TRANSPLANT
     Dosage: 130MGM2 PER DAY
     Route: 042
     Dates: start: 20101223, end: 20101223
  2. RITUXAN [Suspect]
     Indication: STEM CELL TRANSPLANT
     Dosage: 375MGM2 PER DAY
     Route: 042
     Dates: start: 20101219, end: 20101219
  3. BACTRIM [Concomitant]
     Dosage: 2IUAX PER DAY
     Route: 048
     Dates: start: 20101217, end: 20101223
  4. EMEND [Concomitant]
     Route: 048
     Dates: start: 20101220, end: 20101222
  5. MUCOSTA [Concomitant]
     Dosage: 300MG PER DAY
     Route: 048
     Dates: start: 20101217
  6. FLUCONAZOLE [Concomitant]
     Dosage: 200MG PER DAY
     Route: 048
     Dates: start: 20101217, end: 20110120
  7. URSO 250 [Concomitant]
     Dosage: 600MG PER DAY
     Route: 048
     Dates: start: 20101217, end: 20110511
  8. BIO THREE [Concomitant]
     Dosage: 3IUAX PER DAY
     Route: 048
     Dates: start: 20101217
  9. CYCLOPHOSPHAMIDE [Suspect]
     Indication: STEM CELL TRANSPLANT
     Dosage: 60MGK PER DAY
     Dates: start: 20101220, end: 20101221
  10. CIPROFLOXACIN HCL [Concomitant]
     Dosage: 600MG PER DAY
     Route: 048
     Dates: start: 20101220, end: 20110103
  11. BACTRIM [Concomitant]
     Route: 048
     Dates: start: 20110106
  12. ETOPOSIDE [Suspect]
     Indication: STEM CELL TRANSPLANT
     Dosage: 500MGM2 PER DAY
     Route: 042
     Dates: start: 20101220, end: 20101222
  13. FAMOTIDINE [Concomitant]
     Dosage: 40MG PER DAY
     Route: 048
     Dates: start: 20101217, end: 20110413

REACTIONS (4)
  - ALANINE AMINOTRANSFERASE INCREASED [None]
  - C-REACTIVE PROTEIN INCREASED [None]
  - HEPATIC FUNCTION ABNORMAL [None]
  - ASPARTATE AMINOTRANSFERASE INCREASED [None]
